FAERS Safety Report 21779034 (Version 5)
Quarter: 2025Q1

REPORT INFORMATION
  Report Type: Report from Study
  Country: ES (occurrence: ES)
  Receive Date: 20221226
  Receipt Date: 20250324
  Transmission Date: 20250408
  Serious: Yes (Hospitalization)
  Sender: MYLAN
  Company Number: ES-AstraZeneca-2022A337836

PATIENT
  Age: 72 Year
  Sex: Male
  Weight: 50 kg

DRUGS (53)
  1. LENALIDOMIDE [Suspect]
     Active Substance: LENALIDOMIDE
     Indication: Follicular lymphoma
  2. LENALIDOMIDE [Suspect]
     Active Substance: LENALIDOMIDE
     Indication: B-cell lymphoma
  3. LENALIDOMIDE [Suspect]
     Active Substance: LENALIDOMIDE
     Indication: Follicular lymphoma stage III
  4. SODIUM FLUORIDE [Suspect]
     Active Substance: SODIUM FLUORIDE
     Indication: Product used for unknown indication
  5. SODIUM FLUORIDE [Suspect]
     Active Substance: SODIUM FLUORIDE
  6. SODIUM FLUORIDE [Suspect]
     Active Substance: SODIUM FLUORIDE
  7. ASPIRIN [Suspect]
     Active Substance: ASPIRIN
     Indication: Product used for unknown indication
     Dosage: 100 MILLIGRAM, QD
     Dates: start: 20211231
  8. ASPIRIN [Suspect]
     Active Substance: ASPIRIN
     Dosage: 100 MILLIGRAM, QD
  9. ASPIRIN [Suspect]
     Active Substance: ASPIRIN
     Dosage: 100 MILLIGRAM, QD
  10. RITUXIMAB [Suspect]
     Active Substance: RITUXIMAB
     Indication: Follicular lymphoma
     Dosage: 375 MILLIGRAM/SQ. METER, QW
     Dates: start: 20211230
  11. RITUXIMAB [Suspect]
     Active Substance: RITUXIMAB
     Indication: B-cell lymphoma
     Dosage: 375 MILLIGRAM/SQ. METER, QW
     Dates: start: 20211231
  12. RITUXIMAB [Suspect]
     Active Substance: RITUXIMAB
     Indication: Follicular lymphoma stage III
  13. EPCORITAMAB [Suspect]
     Active Substance: EPCORITAMAB
     Indication: Follicular lymphoma
     Dosage: 0.16 MG, PRIMING DOSE
     Dates: start: 20211230, end: 20211230
  14. EPCORITAMAB [Suspect]
     Active Substance: EPCORITAMAB
     Indication: B-cell lymphoma
     Dates: start: 20211231, end: 20211231
  15. EPCORITAMAB [Suspect]
     Active Substance: EPCORITAMAB
     Dosage: 0.9 MILLIGRAM, QD
     Dates: start: 20220107, end: 20220107
  16. EPCORITAMAB [Suspect]
     Active Substance: EPCORITAMAB
  17. EPCORITAMAB [Suspect]
     Active Substance: EPCORITAMAB
     Dosage: 0.16 MG, PRIMING DOSE
     Dates: start: 20220114
  18. PREDNISONE [Suspect]
     Active Substance: PREDNISONE
     Indication: Product used for unknown indication
     Dates: start: 20220101, end: 20220103
  19. PREDNISONE [Suspect]
     Active Substance: PREDNISONE
     Dates: start: 20220108, end: 20220110
  20. PREDNISONE [Suspect]
     Active Substance: PREDNISONE
  21. PREDNISONE [Suspect]
     Active Substance: PREDNISONE
  22. PREDNISONE [Suspect]
     Active Substance: PREDNISONE
  23. SODIUM CHLORIDE [Suspect]
     Active Substance: SODIUM CHLORIDE
     Indication: Product used for unknown indication
  24. ACYCLOVIR [Concomitant]
     Active Substance: ACYCLOVIR
     Indication: Prophylaxis
     Dosage: 400 MILLIGRAM, BID
     Dates: start: 20211230
  25. ACYCLOVIR [Concomitant]
     Active Substance: ACYCLOVIR
     Dosage: 400 MILLIGRAM, BID
     Dates: start: 20211231
  26. OMEPRAZOLE [Concomitant]
     Active Substance: OMEPRAZOLE
     Indication: Prophylaxis
     Dosage: 20 MILLIGRAM, QD, 80 MG
     Dates: start: 20211230
  27. AMOXICILLIN\CLAVULANIC ACID [Concomitant]
     Active Substance: AMOXICILLIN\CLAVULANIC ACID
     Indication: Pyrexia
     Dosage: 1 GRAM, TID
     Dates: start: 20220116, end: 20220122
  28. AMOXICILLIN\CLAVULANIC ACID [Concomitant]
     Active Substance: AMOXICILLIN\CLAVULANIC ACID
     Dosage: 3 GRAM, TID
     Dates: end: 20220122
  29. ACETAMINOPHEN [Concomitant]
     Active Substance: ACETAMINOPHEN
     Indication: Pain
     Dates: start: 20211231, end: 20220114
  30. ACETAMINOPHEN [Concomitant]
     Active Substance: ACETAMINOPHEN
  31. ACETAMINOPHEN [Concomitant]
     Active Substance: ACETAMINOPHEN
  32. ACETAMINOPHEN [Concomitant]
     Active Substance: ACETAMINOPHEN
     Dosage: 1 DOSAGE FORM, Q8H
     Dates: start: 20211230
  33. ALLOPURINOL [Concomitant]
     Active Substance: ALLOPURINOL
     Indication: Prophylaxis
     Dosage: 300 MILLIGRAM, QD
     Dates: start: 20211231, end: 20220217
  34. ALLOPURINOL [Concomitant]
     Active Substance: ALLOPURINOL
     Dosage: 300 MILLIGRAM, QD
     Dates: start: 20211230, end: 20220217
  35. ALLOPURINOL [Concomitant]
     Active Substance: ALLOPURINOL
     Dosage: 300 MILLIGRAM, QD
  36. SULFAMETHOXAZOLE\TRIMETHOPRIM [Concomitant]
     Active Substance: SULFAMETHOXAZOLE\TRIMETHOPRIM
     Indication: Prophylaxis
     Dosage: UNK, QD
     Dates: start: 20211230, end: 20220217
  37. SULFAMETHOXAZOLE\TRIMETHOPRIM [Concomitant]
     Active Substance: SULFAMETHOXAZOLE\TRIMETHOPRIM
  38. SULFAMETHOXAZOLE\TRIMETHOPRIM [Concomitant]
     Active Substance: SULFAMETHOXAZOLE\TRIMETHOPRIM
  39. SULFAMETHOXAZOLE AND TRIMETHOPRIM [Concomitant]
     Active Substance: SULFAMETHOXAZOLE\TRIMETHOPRIM
     Indication: Product used for unknown indication
  40. SODIUM FLUORIDE [Concomitant]
     Active Substance: SODIUM FLUORIDE
     Indication: Product used for unknown indication
  41. SODIUM FLUORIDE [Concomitant]
     Active Substance: SODIUM FLUORIDE
  42. SODIUM FLUORIDE [Concomitant]
     Active Substance: SODIUM FLUORIDE
  43. DEXCHLORPHENIRAMINE [Concomitant]
     Active Substance: DEXCHLORPHENIRAMINE
     Indication: Product used for unknown indication
     Dates: start: 20211231, end: 20220114
  44. DEXCHLORPHENIRAMINE [Concomitant]
     Active Substance: DEXCHLORPHENIRAMINE
     Dates: start: 20220107, end: 20220107
  45. DEXCHLORPHENIRAMINE [Concomitant]
     Active Substance: DEXCHLORPHENIRAMINE
     Dates: start: 20220107, end: 20220107
  46. METHYLPREDNISOLONE [Concomitant]
     Active Substance: METHYLPREDNISOLONE
     Indication: Prophylaxis
     Dates: start: 20211231, end: 20220114
  47. METHYLPREDNISOLONE [Concomitant]
     Active Substance: METHYLPREDNISOLONE
  48. METHYLPREDNISOLONE [Concomitant]
     Active Substance: METHYLPREDNISOLONE
  49. ASPIRIN [Concomitant]
     Active Substance: ASPIRIN
     Indication: Product used for unknown indication
  50. FERROUS SULFATE [Concomitant]
     Active Substance: FERROUS SULFATE
     Indication: Product used for unknown indication
  51. VALGANCICLOVIR [Concomitant]
     Active Substance: VALGANCICLOVIR
     Dates: start: 20220103, end: 20220116
  52. ASPIRIN [Concomitant]
     Active Substance: ASPIRIN
  53. PREDNISONE [Concomitant]
     Active Substance: PREDNISONE
     Dates: start: 20220101, end: 20220117

REACTIONS (6)
  - Cytokine release syndrome [Recovered/Resolved]
  - Pyrexia [Recovered/Resolved]
  - Hypotension [Recovered/Resolved]
  - Fibrin D dimer increased [Unknown]
  - Haemoglobin decreased [Unknown]
  - C-reactive protein increased [Unknown]

NARRATIVE: CASE EVENT DATE: 20220115
